FAERS Safety Report 7075638-6 (Version None)
Quarter: 2010Q4

REPORT INFORMATION
  Report Type: 
  Country: None (occurrence: None)
  Receive Date: 20101030
  Receipt Date: 20101022
  Transmission Date: 20110411
  Serious: No
  Sender: FDA-Public Use
  Company Number: US-WYE-H18314110

PATIENT
  Sex: Female

DRUGS (1)
  1. ADVIL PM [Suspect]
     Indication: INSOMNIA
     Dosage: 1.5 ADVIL PM'S NIGHTLY
     Route: 048

REACTIONS (2)
  - BACK PAIN [None]
  - PAIN IN EXTREMITY [None]
